FAERS Safety Report 6577370-1 (Version None)
Quarter: 2010Q1

REPORT INFORMATION
  Report Type: 
  Country: None (occurrence: None)
  Receive Date: 20100211
  Receipt Date: 20100205
  Transmission Date: 20100710
  Serious: Yes (Other)
  Sender: FDA-Public Use
  Company Number: US-BIOGENIDEC-2009BI014634

PATIENT
  Age: 33 Year
  Sex: Female

DRUGS (5)
  1. AVONEX [Suspect]
     Indication: MULTIPLE SCLEROSIS
     Route: 030
     Dates: start: 20081231, end: 20090313
  2. VITAMIN TAB [Concomitant]
     Indication: PREGNANCY
  3. FISH OIL [Concomitant]
     Indication: MULTIPLE SCLEROSIS
     Route: 048
     Dates: end: 20090319
  4. FISH OIL [Concomitant]
     Route: 048
     Dates: start: 20090320
  5. EFFEXOR [Concomitant]
     Indication: DEPRESSION
     Route: 048
     Dates: end: 20090313

REACTIONS (2)
  - PRE-ECLAMPSIA [None]
  - PREGNANCY [None]
